FAERS Safety Report 8479612-4 (Version None)
Quarter: 2012Q2

REPORT INFORMATION
  Report Type: 
  Country: None (occurrence: None)
  Receive Date: 20120629
  Receipt Date: 20120627
  Transmission Date: 20120825
  Serious: No
  Sender: FDA-Public Use
  Company Number: US-PFIZER INC-2012155277

PATIENT
  Sex: Female

DRUGS (2)
  1. LYRICA [Suspect]
     Dosage: 50 MG, 3X/DAY
  2. LYRICA [Suspect]
     Dosage: TWO 50MG CAPSULES IN MORNING AND ONE 50MG CAPSULE IN EVENING

REACTIONS (7)
  - INSOMNIA [None]
  - LETHARGY [None]
  - EMOTIONAL DISORDER [None]
  - VISION BLURRED [None]
  - DISTURBANCE IN ATTENTION [None]
  - DRUG INEFFECTIVE [None]
  - PAIN [None]
